FAERS Safety Report 6286496-1 (Version None)
Quarter: 2009Q3

REPORT INFORMATION
  Report Type: 
  Country: None (occurrence: None)
  Receive Date: 20090727
  Receipt Date: 20090727
  Transmission Date: 20100115
  Serious: Yes (Other)
  Sender: FDA-Public Use
  Company Number: None

PATIENT
  Sex: Female

DRUGS (5)
  1. LAMOTRIGINE [Suspect]
     Indication: BIPOLAR DISORDER
     Dosage: 150MG BID PO
     Route: 048
     Dates: start: 20090201, end: 20090226
  2. EFFEXOR [Concomitant]
  3. TRAZODONE HCL [Concomitant]
  4. PREMARIN [Concomitant]
  5. GLUCOTROL [Concomitant]

REACTIONS (5)
  - ANGER [None]
  - EMOTIONAL DISORDER [None]
  - NEGATIVISM [None]
  - PRODUCT SUBSTITUTION ISSUE [None]
  - TEARFULNESS [None]
